FAERS Safety Report 18947989 (Version 1)
Quarter: 2021Q1

REPORT INFORMATION
  Report Type: Spontaneous
  Country: AT (occurrence: AT)
  Receive Date: 20210226
  Receipt Date: 20210226
  Transmission Date: 20210420
  Serious: Yes (Other)
  Sender: FDA-Public Use
  Company Number: AT-B.I. PHARMACEUTICALS,INC./RIDGEFIELD-2021-BI-084932

PATIENT
  Age: 62 Year
  Sex: Female

DRUGS (3)
  1. GILOTRIF [Suspect]
     Active Substance: AFATINIB
     Indication: LUNG ADENOCARCINOMA
     Route: 065
     Dates: start: 201507
  2. GILOTRIF [Suspect]
     Active Substance: AFATINIB
     Dates: start: 201508
  3. GILOTRIF [Suspect]
     Active Substance: AFATINIB
     Dates: start: 201510

REACTIONS (6)
  - Malignant neoplasm progression [Unknown]
  - Diarrhoea [Unknown]
  - Escherichia infection [Unknown]
  - Lymphadenopathy [Recovering/Resolving]
  - Pneumonia klebsiella [Unknown]
  - Dry gangrene [Unknown]

NARRATIVE: CASE EVENT DATE: 201510
